FAERS Safety Report 4325485-0 (Version None)
Quarter: 2004Q1

REPORT INFORMATION
  Report Type: 
  Country: None (occurrence: None)
  Receive Date: 20040324
  Receipt Date: 20040304
  Transmission Date: 20041129
  Serious: Yes (Death)
  Sender: FDA-Public Use
  Company Number: A03200400620

PATIENT
  Age: 61 Year
  Sex: Female

DRUGS (4)
  1. ELOXATIN [Suspect]
     Dates: start: 20040226, end: 20040226
  2. FLUOROURACIL [Concomitant]
  3. LEUCOVORIN CALCIUM [Concomitant]
  4. DEXAMETHASONE [Concomitant]

REACTIONS (5)
  - CARDIAC ARREST [None]
  - CORONARY ARTERY INSUFFICIENCY [None]
  - DEPRESSED LEVEL OF CONSCIOUSNESS [None]
  - HEADACHE [None]
  - VENTRICULAR HYPERTROPHY [None]
